FAERS Safety Report 5230509-2 (Version None)
Quarter: 2007Q1

REPORT INFORMATION
  Report Type: 
  Country: None (occurrence: None)
  Receive Date: 20070202
  Receipt Date: 20070117
  Transmission Date: 20070707
  Serious: Yes (Other)
  Sender: FDA-Public Use
  Company Number: 2007AD000004

PATIENT
  Age: 32 Year
  Sex: Female
  Weight: 54.0234 kg

DRUGS (8)
  1. KEFLEX [Suspect]
     Indication: KIDNEY INFECTION
     Dosage: PO
     Route: 048
     Dates: start: 20060819, end: 20060901
  2. KEFLEX [Suspect]
     Indication: URINARY TRACT INFECTION
     Dosage: PO
     Route: 048
     Dates: start: 20060819, end: 20060901
  3. KEFLEX [Suspect]
     Indication: KIDNEY INFECTION
     Dosage: PO
     Route: 048
     Dates: start: 20061001, end: 20061101
  4. KEFLEX [Suspect]
     Indication: URINARY TRACT INFECTION
     Dosage: PO
     Route: 048
     Dates: start: 20061001, end: 20061101
  5. KEFLEX [Suspect]
     Indication: KIDNEY INFECTION
     Dosage: PO
     Route: 048
     Dates: start: 20061201
  6. KEFLEX [Suspect]
     Indication: URINARY TRACT INFECTION
     Dosage: PO
     Route: 048
     Dates: start: 20061201
  7. FERROUS SULFATE/VIT/B1VIT B6/VIT B12 [Concomitant]
  8. FOLIC ACID [Concomitant]

REACTIONS (5)
  - CAESAREAN SECTION [None]
  - COMPLICATION OF DELIVERY [None]
  - DRUG EXPOSURE DURING PREGNANCY [None]
  - NEONATAL INTESTINAL OBSTRUCTION [None]
  - VOMITING NEONATAL [None]
